FAERS Safety Report 7714663-6 (Version None)
Quarter: 2011Q3

REPORT INFORMATION
  Report Type: 
  Country: None (occurrence: None)
  Receive Date: 20110822
  Receipt Date: 20110726
  Transmission Date: 20111222
  Serious: Yes (Death)
  Sender: FDA-Public Use
  Company Number: 2135225-2011-00080

PATIENT
  Age: 5 Month
  Sex: Female
  Weight: 6.2 kg

DRUGS (9)
  1. PROPANOLOL PIERRE FABRE [Concomitant]
  2. AETOXYSCLEROL TAMPONNE 2% (POLIDOCANOL) [Suspect]
     Indication: OFF LABEL USE
     Dosage: 12-5 ML, IV
     Route: 042
     Dates: start: 20110622
  3. ALBUMINE LFB, IV [Concomitant]
  4. CELOCURINE [Concomitant]
  5. ALDACTONE [Concomitant]
  6. DRIPIVAN [Concomitant]
  7. SEFENTANIL [Concomitant]
  8. SEVOFLURANE [Concomitant]
  9. SANDOSTATIN [Concomitant]

REACTIONS (2)
  - ATRIOVENTRICULAR BLOCK SECOND DEGREE [None]
  - CARDIAC ARREST [None]
